FAERS Safety Report 8302539-5 (Version None)
Quarter: 2012Q1

REPORT INFORMATION
  Report Type: 
  Country: None (occurrence: None)
  Receive Date: 20120326
  Receipt Date: 20110414
  Transmission Date: 20120608
  Serious: Yes (Other)
  Sender: FDA-Public Use
  Company Number: PHHY2011US19630

PATIENT
  Age: 81 Year
  Sex: Female

DRUGS (6)
  1. DONEPEZIL HCL [Concomitant]
  2. LORAZEPAM [Concomitant]
  3. TASIGNA [Suspect]
     Indication: CHRONIC MYELOID LEUKAEMIA
     Dosage: 300 MG, BID, ORAL ; 300 MG, QD, ORAL ; 30 MG QD ALTERNATING WITH BID NEXT DAY, ORAL
     Route: 048
     Dates: start: 20110101
  4. ZOLPIDEM [Concomitant]
  5. ASPIRIN [Concomitant]
  6. FERROUS SULFATE TAB [Concomitant]

REACTIONS (2)
  - RASH [None]
  - PRURITUS GENERALISED [None]
